FAERS Safety Report 7589464-2 (Version None)
Quarter: 2011Q3

REPORT INFORMATION
  Report Type: 
  Country: None (occurrence: None)
  Receive Date: 20110705
  Receipt Date: 20110628
  Transmission Date: 20111222
  Serious: No
  Sender: FDA-Public Use
  Company Number: US-JNJFOC-20110700003

PATIENT
  Sex: Female
  Weight: 104 kg

DRUGS (3)
  1. RISPERDAL CONSTA [Suspect]
     Indication: SCHIZOPHRENIA
     Route: 030
  2. INVEGA [Suspect]
     Indication: SCHIZOPHRENIA
     Route: 048
     Dates: start: 20110101
  3. TRILEPTAL [Concomitant]
     Indication: DRUG THERAPY
     Route: 048

REACTIONS (5)
  - HYPERSENSITIVITY [None]
  - SKIN DISCOLOURATION [None]
  - WEIGHT INCREASED [None]
  - SWELLING FACE [None]
  - AGGRESSION [None]
